FAERS Safety Report 10207770 (Version 1)
Quarter: 2014Q2

REPORT INFORMATION
  Report Type: Spontaneous
  Country: FR (occurrence: FR)
  Receive Date: 20140530
  Receipt Date: 20140530
  Transmission Date: 20141212
  Serious: Yes (Hospitalization)
  Sender: FDA-Public Use
  Company Number: FR-TEVA-483781ISR

PATIENT
  Age: 83 Year
  Sex: Male

DRUGS (10)
  1. QVAR [Suspect]
     Dosage: STARTED BEFORE 2005
     Dates: end: 20120529
  2. LASILIX 40 MG [Suspect]
     Dosage: 20 MILLIGRAM DAILY;
     Route: 048
     Dates: start: 20080515, end: 20120529
  3. TRIATEC 2.5 MG [Suspect]
     Dosage: 2.5 MILLIGRAM DAILY; SINCE 26-OCT-2011: 5 MG/DAY: ONGOING
     Dates: start: 20110420, end: 20111026
  4. INNOVAIR 100 MCG/DOSE [Suspect]
     Dosage: SINCE AROUND 2010
     Dates: end: 20120529
  5. NOVONORM 0.5 MG [Suspect]
     Dosage: FOR AT LEAST JUL-2011
     Route: 048
     Dates: end: 20120530
  6. TEMERIT 5 MG [Suspect]
     Dosage: SINCE AT LEAST APR-2011
     Route: 048
     Dates: end: 20120531
  7. KARDEGIC [Concomitant]
  8. LYSANXIA [Concomitant]
  9. SINTROM [Concomitant]
  10. TADENAN [Concomitant]

REACTIONS (1)
  - Hyponatraemia [Recovered/Resolved]
